FAERS Safety Report 12998640 (Version 1)
Quarter: 2016Q4

REPORT INFORMATION
  Report Type: Spontaneous
  Country: US (occurrence: US)
  Receive Date: 20161205
  Receipt Date: 20161205
  Transmission Date: 20170207
  Serious: No
  Sender: FDA-Public Use
  Company Number: US-NORTH CREEK PHARMACEUTICALS LLC-2016VTS00116

PATIENT
  Age: 55 Year
  Sex: Female
  Weight: 72.11 kg

DRUGS (11)
  1. ^T3^ (LIOTHYRONINE SODIUM) [Concomitant]
     Dosage: UNK
     Dates: start: 2007
  2. DAPSONE. [Suspect]
     Active Substance: DAPSONE
     Indication: SEBORRHOEIC DERMATITIS
     Dosage: 25 MG, 2X/DAY
     Route: 048
     Dates: start: 20160921, end: 201609
  3. CYCLOBENZAPRINE [Concomitant]
     Active Substance: CYCLOBENZAPRINE
     Dosage: UNK
     Dates: start: 2015
  4. MULTIPLE SUPPLEMENTS [Concomitant]
  5. ^T4^ (LEVOTHYROXINE SODIUM) [Concomitant]
     Dosage: UNK
     Dates: start: 2007
  6. DAPSONE. [Suspect]
     Active Substance: DAPSONE
     Indication: PEMPHIGUS
     Dosage: 25 MG, 2X/DAY
     Route: 048
     Dates: start: 20160901, end: 20160902
  7. MONTELUKAST [Concomitant]
     Active Substance: MONTELUKAST SODIUM
     Dosage: UNK
     Dates: start: 2015
  8. HOMEOPATHIC TREATMENT SERIES FOR HERPES SIMPLEX [Concomitant]
     Dosage: UNK
     Dates: start: 201607
  9. AMBIEN [Concomitant]
     Active Substance: ZOLPIDEM TARTRATE
     Dosage: UNK
     Dates: start: 2008
  10. DOXYCYCLINE. [Suspect]
     Active Substance: DOXYCYCLINE
     Dosage: UNK UNK, AS NEEDED
     Dates: start: 2012, end: 20160914
  11. FAMCICLOVIR. [Concomitant]
     Active Substance: FAMCICLOVIR
     Dosage: UNK UNK, AS NEEDED
     Dates: start: 2013

REACTIONS (4)
  - Photosensitivity reaction [Recovering/Resolving]
  - Rash erythematous [Recovering/Resolving]
  - Pruritus [Recovering/Resolving]
  - Urticaria [Recovering/Resolving]

NARRATIVE: CASE EVENT DATE: 201609
